FAERS Safety Report 19788298 (Version 5)
Quarter: 2022Q1

REPORT INFORMATION
  Report Type: Report from Study
  Country: US (occurrence: US)
  Receive Date: 20210903
  Receipt Date: 20220302
  Transmission Date: 20220424
  Serious: No
  Sender: FDA-Public Use
  Company Number: NVSC2021US199709

PATIENT
  Sex: Male

DRUGS (2)
  1. COSENTYX [Suspect]
     Active Substance: SECUKINUMAB
     Indication: Psoriatic arthropathy
     Dosage: 150MG, QW(ONCE A WEEK)
     Route: 058
  2. COSENTYX [Suspect]
     Active Substance: SECUKINUMAB
     Dosage: 300 MG
     Route: 058

REACTIONS (7)
  - Joint swelling [Recovering/Resolving]
  - Chills [Unknown]
  - Fatigue [Unknown]
  - Peripheral swelling [Unknown]
  - Inflammation [Unknown]
  - Rash [Recovering/Resolving]
  - Inappropriate schedule of product administration [Recovering/Resolving]
